FAERS Safety Report 20061702 (Version 1)
Quarter: 2021Q4

REPORT INFORMATION
  Report Type: Spontaneous
  Country: US (occurrence: None)
  Receive Date: 20211112
  Receipt Date: 20211112
  Transmission Date: 20220303
  Serious: Yes (Hospitalization, Other)
  Sender: FDA-Public Use
  Company Number: 2021A799772

PATIENT
  Sex: Male
  Weight: 77.1 kg

DRUGS (1)
  1. BUDESONIDE\FORMOTEROL\GLYCOPYRRONIUM [Suspect]
     Active Substance: BUDESONIDE\FORMOTEROL\GLYCOPYRRONIUM
     Indication: Asthma
     Dosage: 2 PUFFS, TWO TIMES A DAY
     Route: 055

REACTIONS (8)
  - Respiration abnormal [Recovering/Resolving]
  - Cardiac disorder [Recovering/Resolving]
  - Prostate cancer [Unknown]
  - Blood glucose abnormal [Not Recovered/Not Resolved]
  - Ill-defined disorder [Unknown]
  - Urine analysis abnormal [Unknown]
  - Nephrolithiasis [Unknown]
  - Candida infection [Unknown]
